FAERS Safety Report 6125857-8 (Version None)
Quarter: 2009Q1

REPORT INFORMATION
  Report Type: 
  Country: None (occurrence: None)
  Receive Date: 20090320
  Receipt Date: 20090311
  Transmission Date: 20090719
  Serious: Yes (Hospitalization)
  Sender: FDA-Public Use
  Company Number: US-BIOGENIDEC-2009BI004441

PATIENT
  Age: 54 Year
  Sex: Female
  Weight: 108 kg

DRUGS (20)
  1. AVONEX [Suspect]
     Indication: MULTIPLE SCLEROSIS
     Route: 030
     Dates: start: 20030601, end: 20030101
  2. AVONEX [Suspect]
     Route: 030
     Dates: start: 20030101, end: 20071001
  3. AVONEX [Suspect]
     Route: 030
     Dates: start: 20080823
  4. BACLOFEN [Concomitant]
     Indication: MUSCLE SPASMS
     Route: 048
  5. LISINOPRIL [Concomitant]
     Indication: DRUG USE FOR UNKNOWN INDICATION
  6. LISINOPRIL [Concomitant]
     Route: 048
  7. MULTI-VITAMIN [Concomitant]
     Indication: DRUG USE FOR UNKNOWN INDICATION
     Route: 048
  8. OS-CAL +D [Concomitant]
     Indication: DRUG USE FOR UNKNOWN INDICATION
     Route: 048
  9. ACETAMINOPHEN [Concomitant]
     Indication: DRUG USE FOR UNKNOWN INDICATION
     Route: 048
  10. FERROUS SULFATE TAB [Concomitant]
     Indication: DRUG USE FOR UNKNOWN INDICATION
     Route: 048
  11. FAMOTIDINE [Concomitant]
     Indication: DRUG USE FOR UNKNOWN INDICATION
     Route: 048
  12. LORAZEPAM [Concomitant]
     Indication: ANXIETY
     Route: 048
  13. LORAZEPAM [Concomitant]
     Indication: INSOMNIA
     Route: 048
  14. ZOFRAN [Concomitant]
     Indication: NAUSEA
  15. ZOFRAN [Concomitant]
     Indication: VOMITING
  16. MIRALAX [Concomitant]
     Indication: CONSTIPATION
     Route: 048
  17. SENNOSIDES-DOCUSATE SODIUM [Concomitant]
     Indication: DRUG USE FOR UNKNOWN INDICATION
     Route: 048
  18. CRITIC-AID CLEAR [Concomitant]
     Indication: DRUG USE FOR UNKNOWN INDICATION
     Route: 061
  19. DITROPAN [Concomitant]
     Indication: DRUG USE FOR UNKNOWN INDICATION
     Route: 048
  20. NORVASC [Concomitant]
     Indication: DRUG USE FOR UNKNOWN INDICATION
     Route: 048

REACTIONS (13)
  - ACUTE MYOCARDIAL INFARCTION [None]
  - CAUDA EQUINA SYNDROME [None]
  - DECUBITUS ULCER [None]
  - ESCHERICHIA SEPSIS [None]
  - ESSENTIAL HYPERTENSION [None]
  - GLUCOSE TOLERANCE IMPAIRED [None]
  - MENTAL STATUS CHANGES [None]
  - MULTIPLE SCLEROSIS RELAPSE [None]
  - NEUROGENIC BLADDER [None]
  - OBESITY [None]
  - RENAL FAILURE [None]
  - SOMNOLENCE [None]
  - URINARY TRACT INFECTION [None]
